FAERS Safety Report 10527556 (Version 1)
Quarter: 2014Q4

REPORT INFORMATION
  Report Type: Spontaneous
  Country: US (occurrence: None)
  Receive Date: 20141016
  Receipt Date: 20141016
  Transmission Date: 20150528
  Serious: Yes (Hospitalization)
  Sender: FDA-Public Use
  Company Number: None

PATIENT
  Age: 30 Year
  Sex: Male
  Weight: 81 kg

DRUGS (3)
  1. IMURAN [Concomitant]
     Active Substance: AZATHIOPRINE
  2. PREDNISONE. [Concomitant]
     Active Substance: PREDNISONE
  3. ENTYVIO [Suspect]
     Active Substance: VEDOLIZUMAB
     Indication: COLITIS ULCERATIVE
     Dosage: AT 0, 2, 6 WEEKS
     Route: 042
     Dates: start: 20140801, end: 20140919

REACTIONS (3)
  - Multiple sclerosis [None]
  - Unresponsive to stimuli [None]
  - Hydrocephalus [None]

NARRATIVE: CASE EVENT DATE: 20140919
